FAERS Safety Report 6750794-5 (Version None)
Quarter: 2010Q2

REPORT INFORMATION
  Report Type: 
  Country: None (occurrence: None)
  Receive Date: 20100602
  Receipt Date: 20100521
  Transmission Date: 20101027
  Serious: Yes (Other)
  Sender: FDA-Public Use
  Company Number: US-WYE-H01591107

PATIENT
  Sex: Female
  Weight: 69.46 kg

DRUGS (1)
  1. PREMPRO [Suspect]

REACTIONS (1)
  - BREAST CANCER METASTATIC [None]
